FAERS Safety Report 9535085 (Version 2)
Quarter: 2013Q3

REPORT INFORMATION
  Report Type: Spontaneous
  Country: JP (occurrence: JP)
  Receive Date: 20130918
  Receipt Date: 20130924
  Transmission Date: 20140515
  Serious: Yes (Hospitalization, Other)
  Sender: FDA-Public Use
  Company Number: JP-TAKEDA-2013TJP000876

PATIENT
  Age: 69 Year
  Sex: Male

DRUGS (5)
  1. LIOVEL COMBINATION TABLETS LD [Suspect]
     Indication: DIABETES MELLITUS
     Dosage: 1 DF, QD
     Route: 048
  2. LIOVEL COMBINATION TABLETS LD [Suspect]
     Dosage: 1 DF, QD
     Route: 048
  3. NORVASC [Concomitant]
     Route: 048
  4. IRBETAN [Concomitant]
     Route: 048
  5. MEVALOTIN [Concomitant]
     Route: 048

REACTIONS (1)
  - Cerebral infarction [Unknown]
